FAERS Safety Report 19085879 (Version 1)
Quarter: 2021Q2

REPORT INFORMATION
  Report Type: Spontaneous
  Country: CA (occurrence: CA)
  Receive Date: 20210402
  Receipt Date: 20210402
  Transmission Date: 20210717
  Serious: Yes (Other)
  Sender: FDA-Public Use
  Company Number: CA-ROCHE-2795007

PATIENT
  Age: 45 Year
  Sex: Female

DRUGS (5)
  1. CESAMET [Concomitant]
     Active Substance: NABILONE
     Route: 065
  2. MODAFINIL. [Concomitant]
     Active Substance: MODAFINIL
     Route: 065
  3. TRAZODONE [Concomitant]
     Active Substance: TRAZODONE HYDROCHLORIDE
     Route: 065
  4. OCRELIZUMAB. [Suspect]
     Active Substance: OCRELIZUMAB
     Indication: RELAPSING-REMITTING MULTIPLE SCLEROSIS
     Route: 042
  5. LYRICA [Suspect]
     Active Substance: PREGABALIN
     Indication: PAIN
     Route: 065

REACTIONS (11)
  - Dizziness [Unknown]
  - Insomnia [Unknown]
  - Pneumonia [Unknown]
  - Drug intolerance [Unknown]
  - Pain [Unknown]
  - Stress [Unknown]
  - Nasopharyngitis [Unknown]
  - Therapeutic response shortened [Unknown]
  - Vertigo [Unknown]
  - Malaise [Unknown]
  - Pyrexia [Unknown]
